FAERS Safety Report 11803701 (Version 1)
Quarter: 2015Q4

REPORT INFORMATION
  Report Type: Spontaneous
  Country: EG (occurrence: EG)
  Receive Date: 20151204
  Receipt Date: 20151204
  Transmission Date: 20160305
  Serious: Yes (Other)
  Sender: FDA-Public Use
  Company Number: EG-PFIZER INC.-2015412599

PATIENT
  Age: 2 Year
  Sex: Female

DRUGS (3)
  1. SULTAMICILLIN TOSILATE HYDRATE [Suspect]
     Active Substance: SULTAMICILLIN TOSYLATE DIHYDRATE
     Indication: UPPER RESPIRATORY TRACT INFECTION
     Dosage: UNK
  2. DICLOFENAC SODIUM. [Suspect]
     Active Substance: DICLOFENAC SODIUM
     Indication: UPPER RESPIRATORY TRACT INFECTION
     Dosage: UNK
  3. CEFOPERAZONE SODIUM [Suspect]
     Active Substance: CEFOPERAZONE SODIUM
     Indication: UPPER RESPIRATORY TRACT INFECTION
     Dosage: UNK

REACTIONS (6)
  - Thrombocytopenia [None]
  - Drug reaction with eosinophilia and systemic symptoms [Recovering/Resolving]
  - Anaemia [None]
  - Blood triglycerides increased [None]
  - Hypotension [None]
  - Metabolic acidosis [None]
